FAERS Safety Report 9182106 (Version 1)
Quarter: 2012Q4

REPORT INFORMATION
  Report Type: 
  Country: FR (occurrence: FR)
  Receive Date: 20121030
  Receipt Date: 20121030
  Transmission Date: 20130627
  Serious: Yes (Death, Hospitalization, Other)
  Sender: FDA-Public Use
  Company Number: FR-BRISTOL-MYERS SQUIBB COMPANY-17053521

PATIENT
  Age: 80 Year
  Sex: Female

DRUGS (3)
  1. COUMADIN TABS 2 MG [Suspect]
     Indication: ATRIAL FIBRILLATION
     Dosage: 8Sep12 Coumadine  stopped:2days,On 10Sep12 Coumadine reintroduced.
     Route: 048
     Dates: start: 20120907
  2. LOVENOX [Suspect]
     Dosage: Lovenox,anti-Xa/0.4 ml, solution for injection in prefilled syringe (enoxaparine sodium) 1/d
     Route: 058
     Dates: start: 20120904, end: 20120909
  3. HEPARIN SODIUM [Suspect]
     Dosage: Dose increased:10,000 Iu/12Hr
     Dates: start: 20120910, end: 20120911

REACTIONS (4)
  - Cerebral haemorrhage [Fatal]
  - Hyperkalaemia [Unknown]
  - Renal failure acute [Unknown]
  - Fall [Unknown]
